FAERS Safety Report 7491149-8 (Version None)
Quarter: 2011Q2

REPORT INFORMATION
  Report Type: 
  Country: None (occurrence: None)
  Receive Date: 20110519
  Receipt Date: 20110516
  Transmission Date: 20111010
  Serious: Yes (Death, Hospitalization, Other)
  Sender: FDA-Public Use
  Company Number: GB-ASTRAZENECA-2011SE26171

PATIENT
  Age: 19 Year
  Sex: Female

DRUGS (5)
  1. MOTILIUM [Suspect]
  2. SILDENAFIL CITRATE [Concomitant]
     Indication: PULMONARY ARTERIAL HYPERTENSION
  3. OMEPRAZOLE [Suspect]
     Indication: EAR INFECTION
     Route: 048
  4. AMOXICILLIN [Suspect]
     Indication: EAR INFECTION
  5. SITAXENTAN [Suspect]
     Indication: PULMONARY ARTERIAL HYPERTENSION

REACTIONS (2)
  - ACUTE HEPATIC FAILURE [None]
  - BRAIN OEDEMA [None]
